FAERS Safety Report 8425851-8 (Version None)
Quarter: 2012Q2

REPORT INFORMATION
  Report Type: 
  Country: None (occurrence: None)
  Receive Date: 20120611
  Receipt Date: 20120531
  Transmission Date: 20120825
  Serious: Yes (Other)
  Sender: FDA-Public Use
  Company Number: GB-ASTELLAS-2011EU001757

PATIENT
  Sex: Male
  Weight: 15 kg

DRUGS (8)
  1. BALNEUM [Concomitant]
     Indication: DERMATITIS ATOPIC
     Dosage: UNK
     Route: 061
  2. DIPROBASE [Concomitant]
     Indication: DERMATITIS ATOPIC
     Dosage: UNK
     Route: 061
     Dates: start: 20070306
  3. ALBUTEROL [Concomitant]
     Indication: ASTHMA
     Dosage: UNK
     Route: 055
  4. TZ-3 [Concomitant]
     Indication: DERMATITIS ATOPIC
     Dosage: UNK
     Route: 061
     Dates: start: 20060808
  5. BECLOMETHASONE DIPROPIONATE [Concomitant]
     Indication: ASTHMA
     Dosage: UNK
     Route: 055
  6. TACROLIMUS [Suspect]
     Indication: DERMATITIS ATOPIC
     Dosage: 0.03 %, BID PRN
     Route: 061
     Dates: start: 20080301
  7. HYDROCORTISONE [Concomitant]
     Indication: DERMATITIS ATOPIC
     Dosage: 1 %, PRN
     Route: 061
     Dates: start: 20060613
  8. CHLORPHENIRAMINE TAB [Concomitant]
     Indication: ECZEMA
     Dosage: 2MG/5ML,  2.5 ML, PRN
     Route: 065

REACTIONS (2)
  - LYMPHADENOPATHY [None]
  - OTITIS MEDIA [None]
